FAERS Safety Report 13954120 (Version 1)
Quarter: 2017Q3

REPORT INFORMATION
  Report Type: Spontaneous
  Country: ES (occurrence: ES)
  Receive Date: 20170911
  Receipt Date: 20170911
  Transmission Date: 20171128
  Serious: Yes (Hospitalization)
  Sender: FDA-Public Use
  Company Number: ES-LUPIN PHARMACEUTICALS INC.-2017-00019

PATIENT
  Age: 27 Year
  Sex: Male

DRUGS (3)
  1. MELOXICAM. [Suspect]
     Active Substance: MELOXICAM
     Indication: PNEUMONIA
     Dosage: 15 MG,QD,
     Route: 065
  2. IBUPROFEN. [Suspect]
     Active Substance: IBUPROFEN
     Indication: PNEUMONIA
     Dosage: UNK UNK,UNK,UNKNOWN
     Route: 065
  3. KETOROLAC [Suspect]
     Active Substance: KETOROLAC\KETOROLAC TROMETHAMINE
     Indication: PNEUMONIA
     Dosage: UNK UNK,UNK,UNKNOWN
     Route: 065

REACTIONS (1)
  - Agranulocytosis [Recovered/Resolved]
